FAERS Safety Report 17693829 (Version 1)
Quarter: 2020Q2

REPORT INFORMATION
  Report Type: Spontaneous
  Country: US (occurrence: US)
  Receive Date: 20200422
  Receipt Date: 20200422
  Transmission Date: 20200714
  Serious: Yes (Death, Hospitalization, Other)
  Sender: FDA-Public Use
  Company Number: US-NAPPMUNDI-USA-2020-0151265

PATIENT
  Sex: Female

DRUGS (2)
  1. ALCOHOL. [Suspect]
     Active Substance: ALCOHOL
     Indication: PRODUCT USED FOR UNKNOWN INDICATION
     Route: 065
  2. OXYCONTIN [Suspect]
     Active Substance: OXYCODONE HYDROCHLORIDE
     Indication: PAIN
     Dosage: UNK
     Route: 048

REACTIONS (11)
  - Hypersomnia [Unknown]
  - Drug dependence [Unknown]
  - Near death experience [Unknown]
  - Death [Fatal]
  - Injury [Unknown]
  - Coordination abnormal [Unknown]
  - Accident at home [Unknown]
  - Product prescribing issue [Unknown]
  - Anger [Unknown]
  - Drug withdrawal syndrome [Unknown]
  - Asthenia [Unknown]

NARRATIVE: CASE EVENT DATE: 2014
